FAERS Safety Report 19032851 (Version 1)
Quarter: 2021Q1

REPORT INFORMATION
  Report Type: Spontaneous
  Country: US (occurrence: US)
  Receive Date: 20210319
  Receipt Date: 20210319
  Transmission Date: 20210420
  Serious: No
  Sender: FDA-Public Use
  Company Number: US-THERAPEUTICSMD-2020TMD05582

PATIENT
  Sex: Female
  Weight: 52.15 kg

DRUGS (4)
  1. IMVEXXY [Suspect]
     Active Substance: ESTRADIOL
     Dosage: 10 ?G, 2X/WEEK BEFORE BED
     Dates: start: 2020, end: 202011
  2. IMVEXXY [Suspect]
     Active Substance: ESTRADIOL
     Indication: ILL-DEFINED DISORDER
     Dosage: 10 ?G, 1X/DAY BEFORE BED
     Dates: start: 202010, end: 2020
  3. TESTOSTERONE. [Concomitant]
     Active Substance: TESTOSTERONE
     Route: 062
  4. ESTROGEN [Concomitant]
     Active Substance: ESTROGENS
     Route: 062

REACTIONS (6)
  - Vulvovaginal pruritus [Recovering/Resolving]
  - Vulvovaginal erythema [Recovering/Resolving]
  - Vulvovaginal pain [Recovering/Resolving]
  - Product administration error [Recovered/Resolved]
  - Vulvovaginal discomfort [Recovering/Resolving]
  - Vulvovaginal burning sensation [Recovering/Resolving]

NARRATIVE: CASE EVENT DATE: 2020
